FAERS Safety Report 7251618-2 (Version None)
Quarter: 2011Q1

REPORT INFORMATION
  Report Type: 
  Country: None (occurrence: None)
  Receive Date: 20110128
  Receipt Date: 20110125
  Transmission Date: 20110831
  Serious: Yes (Other)
  Sender: FDA-Public Use
  Company Number: ES-PFIZER INC-2011018045

PATIENT
  Sex: Female

DRUGS (2)
  1. TRANKIMAZIN RETARD [Suspect]
     Indication: ANXIETY
     Dosage: UNK
  2. LORAZEPAM [Concomitant]
     Dosage: 1/2 TABLET DAILY

REACTIONS (2)
  - HELICOBACTER INFECTION [None]
  - NERVOUSNESS [None]
